FAERS Safety Report 4402876-0 (Version None)
Quarter: 2004Q3

REPORT INFORMATION
  Report Type: 
  Country: None (occurrence: None)
  Receive Date: 20040720
  Receipt Date: 20040720
  Transmission Date: 20050211
  Serious: No
  Sender: FDA-Public Use
  Company Number: None

PATIENT
  Age: 5 Year
  Sex: Female
  Weight: 21.8 kg

DRUGS (14)
  1. RAPAMINE (SIROLIMUS) [Suspect]
     Indication: RENAL TRANSPLANT
     Dosage: 0.7 MG PO QD
     Route: 048
     Dates: start: 20030721, end: 20040704
  2. AMPHOTERICIN B [Concomitant]
  3. ZYVOX [Concomitant]
  4. CLARITIN [Concomitant]
  5. ENALAPRIL MALEATE [Concomitant]
  6. LABETALOL HCL [Concomitant]
  7. LORAZEPAM [Concomitant]
  8. PROPOFOL [Concomitant]
  9. FUROSEMIDE [Concomitant]
  10. OMEPRAZOLE [Concomitant]
  11. METHYLPREDNISOLONE [Concomitant]
  12. PREDNISOLONE [Concomitant]
  13. PREDNISONE [Concomitant]
  14. CELLCEPT [Concomitant]

REACTIONS (1)
  - ASCITES [None]
